FAERS Safety Report 4677345-3 (Version None)
Quarter: 2005Q2

REPORT INFORMATION
  Report Type: 
  Country: None (occurrence: None)
  Receive Date: 20050531
  Receipt Date: 20050523
  Transmission Date: 20051028
  Serious: Yes (Other)
  Sender: FDA-Public Use
  Company Number: PHEH2005US05861

PATIENT
  Sex: Male

DRUGS (3)
  1. ZOMETA [Suspect]
     Indication: MULTIPLE MYELOMA
     Dosage: 4 MG OVER 15 MIN (FREQUENCY UNSPECIFIED)
     Dates: end: 20041101
  2. ANTIHYPERTENSIVES [Concomitant]
  3. THALIDOMIDE [Concomitant]

REACTIONS (1)
  - ASEPTIC NECROSIS BONE [None]
